FAERS Safety Report 12069906 (Version 1)
Quarter: 2016Q1

REPORT INFORMATION
  Report Type: Other
  Country: GB (occurrence: GB)
  Receive Date: 20160211
  Receipt Date: 20160211
  Transmission Date: 20160526
  Serious: Yes (Other)
  Sender: FDA-Public Use
  Company Number: GB-LUPIN PHARMACEUTICALS INC.-2016-00611

PATIENT
  Age: 30 Year
  Sex: Male

DRUGS (4)
  1. MORPHINE [Suspect]
     Active Substance: MORPHINE
     Indication: ANKLE FRACTURE
  2. TRAMADOL. [Suspect]
     Active Substance: TRAMADOL
     Indication: FEMUR FRACTURE
     Dosage: 100 MG
     Route: 065
  3. MORPHINE [Suspect]
     Active Substance: MORPHINE
     Indication: FEMUR FRACTURE
     Route: 042
  4. TRAMADOL. [Suspect]
     Active Substance: TRAMADOL
     Indication: ANKLE FRACTURE

REACTIONS (1)
  - Depressed level of consciousness [Recovered/Resolved]
